FAERS Safety Report 5401183-7 (Version None)
Quarter: 2007Q3

REPORT INFORMATION
  Report Type: 
  Country: None (occurrence: None)
  Receive Date: 20070731
  Receipt Date: 20070725
  Transmission Date: 20080115
  Serious: Yes (Other)
  Sender: FDA-Public Use
  Company Number: PHBS2007NL12410

PATIENT

DRUGS (1)
  1. FORADIL [Suspect]

REACTIONS (4)
  - BLOOD PRESSURE INCREASED [None]
  - COUGH [None]
  - DIABETES MELLITUS [None]
  - THROAT IRRITATION [None]
